FAERS Safety Report 17342964 (Version 3)
Quarter: 2020Q1

REPORT INFORMATION
  Report Type: Spontaneous
  Country: GR (occurrence: GR)
  Receive Date: 20200129
  Receipt Date: 20200304
  Transmission Date: 20200409
  Serious: Yes (Hospitalization, Other)
  Sender: FDA-Public Use
  Company Number: GR-MYLANLABS-2020M1010163

PATIENT
  Age: 47 Year
  Sex: Male

DRUGS (4)
  1. METHOTREXATE. [Suspect]
     Active Substance: METHOTREXATE
     Indication: IMMUNOSUPPRESSANT DRUG THERAPY
  2. INFLIXIMAB [Suspect]
     Active Substance: INFLIXIMAB
     Indication: RHEUMATOID ARTHRITIS
     Dosage: UNK
     Route: 065
  3. METHOTREXATE. [Suspect]
     Active Substance: METHOTREXATE
     Indication: RHEUMATOID ARTHRITIS
     Dosage: UNK
     Route: 065
  4. INFLIXIMAB [Suspect]
     Active Substance: INFLIXIMAB
     Indication: IMMUNOSUPPRESSANT DRUG THERAPY

REACTIONS (11)
  - Hypofibrinogenaemia [Unknown]
  - Visceral leishmaniasis [Recovering/Resolving]
  - Headache [Recovering/Resolving]
  - Coagulation time prolonged [Unknown]
  - Hepatosplenomegaly [Recovering/Resolving]
  - Pyrexia [Recovering/Resolving]
  - Myalgia [Recovering/Resolving]
  - Hyperhidrosis [Recovering/Resolving]
  - Haematocrit decreased [Unknown]
  - Hepatomegaly [Recovering/Resolving]
  - Inflammatory marker increased [Unknown]
